FAERS Safety Report 10475286 (Version 1)
Quarter: 2014Q3

REPORT INFORMATION
  Report Type: Spontaneous
  Country: US (occurrence: US)
  Receive Date: 20140925
  Receipt Date: 20140925
  Transmission Date: 20150326
  Serious: Yes (Other)
  Sender: FDA-Public Use
  Company Number: PHEH2014US018810

PATIENT
  Sex: Female

DRUGS (1)
  1. EXJADE [Suspect]
     Active Substance: DEFERASIROX
     Indication: BLOOD DISORDER
     Dosage: 250 MG, QD
     Route: 048
     Dates: start: 20140616

REACTIONS (2)
  - Blood iron increased [Unknown]
  - Clostridium bacteraemia [Not Recovered/Not Resolved]
